FAERS Safety Report 13480677 (Version 2)
Quarter: 2017Q2

REPORT INFORMATION
  Report Type: Spontaneous
  Country: US (occurrence: US)
  Receive Date: 20170425
  Receipt Date: 20170504
  Transmission Date: 20170830
  Serious: Yes (Hospitalization)
  Sender: FDA-Public Use
  Company Number: US-ACTELION-A-US2017-152863

PATIENT
  Age: 7 Year
  Sex: Male

DRUGS (4)
  1. CYPROHEPTADINE HCL [Concomitant]
     Active Substance: CYPROHEPTADINE HYDROCHLORIDE
  2. REMODULIN [Concomitant]
     Active Substance: TREPROSTINIL
  3. SILDENAFIL. [Concomitant]
     Active Substance: SILDENAFIL
  4. TRACLEER [Suspect]
     Active Substance: BOSENTAN
     Indication: PULMONARY ARTERIAL HYPERTENSION
     Dosage: 31.25 MG, BID
     Route: 048
     Dates: start: 20131204

REACTIONS (2)
  - Failure to thrive [Not Recovered/Not Resolved]
  - Catheterisation cardiac [Not Recovered/Not Resolved]

NARRATIVE: CASE EVENT DATE: 20170412
